FAERS Safety Report 9265907 (Version 1)
Quarter: 2013Q2

REPORT INFORMATION
  Report Type: Spontaneous
  Country: US (occurrence: US)
  Receive Date: 20130501
  Receipt Date: 20130501
  Transmission Date: 20140414
  Serious: Yes (Hospitalization)
  Sender: FDA-Public Use
  Company Number: CHPA2013US007086

PATIENT
  Age: 65 Year
  Sex: Male

DRUGS (1)
  1. CVS [Suspect]
     Indication: DRUG WITHDRAWAL MAINTENANCE THERAPY
     Dosage: 21 MG, QD
     Route: 062
     Dates: start: 20130419

REACTIONS (4)
  - Malaise [Unknown]
  - Concomitant disease aggravated [Unknown]
  - Off label use [Unknown]
  - Insomnia [Unknown]
